FAERS Safety Report 7484753-4 (Version None)
Quarter: 2011Q2

REPORT INFORMATION
  Report Type: 
  Country: None (occurrence: None)
  Receive Date: 20110517
  Receipt Date: 20081107
  Transmission Date: 20111010
  Serious: Yes (Other)
  Sender: FDA-Public Use
  Company Number: US-BAYER-2011-006108

PATIENT
  Age: 80 Year
  Sex: Female
  Weight: 65 kg

DRUGS (8)
  1. TRASYLOL [Suspect]
     Indication: CORONARY ARTERY BYPASS
     Dosage: UNK
     Dates: start: 20001113
  2. LASIX [Concomitant]
     Dosage: 40 MG, QD
     Route: 048
  3. ASPIRIN [Concomitant]
     Dosage: UNK UNK, QD
     Route: 048
  4. ZESTRIL [Concomitant]
     Dosage: 10 MG, QD
     Route: 048
  5. HEPARIN [Concomitant]
     Dosage: 17000 U, UNK
     Dates: start: 20001113, end: 20001113
  6. ZOCOR [Concomitant]
     Dosage: 10 MG, QD
     Route: 048
  7. NITROGLYCERIN [Concomitant]
     Dosage: UNK
     Dates: start: 20001113, end: 20001113
  8. CARDIZEM CD [Concomitant]
     Dosage: 300 MG, QD
     Route: 048

REACTIONS (10)
  - STRESS [None]
  - PAIN [None]
  - FEAR [None]
  - INJURY [None]
  - RENAL IMPAIRMENT [None]
  - EMOTIONAL DISORDER [None]
  - ANXIETY [None]
  - UNEVALUABLE EVENT [None]
  - EMOTIONAL DISTRESS [None]
  - RENAL INJURY [None]
